FAERS Safety Report 8560338 (Version 2)
Quarter: 2015Q2

REPORT INFORMATION
  Report Type: Report from Study
  Country: GB (occurrence: GB)
  Receive Date: 20120514
  Receipt Date: 20150514
  Transmission Date: 20150821
  Serious: Yes (Hospitalization)
  Sender: FDA-Public Use
  Company Number: GB-ROCHE-1065226

PATIENT
  Age: 61 Year
  Sex: Male

DRUGS (4)
  1. BEVACIZUMAB [Suspect]
     Active Substance: BEVACIZUMAB
     Indication: ADENOCARCINOMA GASTRIC
     Dosage: LAST DOSE PRIOR SAE 05 DEC 2011
     Route: 042
     Dates: start: 20111024
  2. CAPECITABINE. [Suspect]
     Active Substance: CAPECITABINE
     Indication: ADENOCARCINOMA GASTRIC
     Dosage: LAST DOSE PRIOR SAE 26 DEC 2011
     Route: 048
     Dates: start: 20111024
  3. CISPLATIN. [Suspect]
     Active Substance: CISPLATIN
     Indication: ADENOCARCINOMA GASTRIC
     Dosage: LAST DOSE PRIOR SAE 05 DEC 2011
     Route: 042
     Dates: start: 20111024
  4. EPIRUBICIN [Suspect]
     Active Substance: EPIRUBICIN
     Indication: ADENOCARCINOMA GASTRIC
     Dosage: LAST DOSE PRIOR SAE 05 DEC 2011
     Route: 042
     Dates: start: 20111024

REACTIONS (1)
  - Anastomotic leak [Not Recovered/Not Resolved]

NARRATIVE: CASE EVENT DATE: 20120217
